FAERS Safety Report 7982855-7 (Version None)
Quarter: 2011Q4

REPORT INFORMATION
  Report Type: 
  Country: None (occurrence: None)
  Receive Date: 20111215
  Receipt Date: 20111208
  Transmission Date: 20120403
  Serious: Yes (Other)
  Sender: FDA-Public Use
  Company Number: US-SANOFI-AVENTIS-2011SA080907

PATIENT
  Age: 86 Year
  Sex: Female

DRUGS (3)
  1. LANTUS [Suspect]
     Dosage: DOSE:18 UNIT(S)
     Route: 058
     Dates: start: 20100101
  2. LANTUS [Suspect]
     Dates: start: 20100101
  3. PREDNISONE [Suspect]
     Route: 065

REACTIONS (2)
  - BLOOD GLUCOSE INCREASED [None]
  - HEPATIC NEOPLASM MALIGNANT [None]
